FAERS Safety Report 11109503 (Version 5)
Quarter: 2015Q3

REPORT INFORMATION
  Report Type: Spontaneous
  Country: US (occurrence: US)
  Receive Date: 20150513
  Receipt Date: 20150925
  Transmission Date: 20151125
  Serious: Yes (Hospitalization, Other)
  Sender: FDA-Public Use
  Company Number: US-BAYER-2015-179207

PATIENT
  Age: 74 Year
  Sex: Male
  Weight: 64.9 kg

DRUGS (6)
  1. ADEMPAS [Suspect]
     Active Substance: RIOCIGUAT
     Indication: PRODUCT USED FOR UNKNOWN INDICATION
     Dosage: UNK
     Dates: end: 201507
  2. REMODULIN [Suspect]
     Active Substance: TREPROSTINIL
     Indication: PULMONARY HYPERTENSION
     Dosage: 0.04 MCG/KG/MIN
     Route: 041
     Dates: start: 20091026
  3. REMODULIN [Suspect]
     Active Substance: TREPROSTINIL
     Indication: PULMONARY HYPERTENSION
     Dosage: 0.04 MCG/KG/MIN
     Route: 041
     Dates: start: 20090817
  4. APIXABAN [Concomitant]
     Active Substance: APIXABAN
  5. REMODULIN [Suspect]
     Active Substance: TREPROSTINIL
     Indication: PULMONARY HYPERTENSION
     Dosage: 0.04 MCG/KG/MIN
     Route: 041
     Dates: start: 20090902
  6. TRACLEER [Concomitant]
     Active Substance: BOSENTAN

REACTIONS (25)
  - Pain [Unknown]
  - Haematemesis [Unknown]
  - Abdominal discomfort [Unknown]
  - Back pain [None]
  - Muscle twitching [Unknown]
  - Pruritus generalised [None]
  - Myalgia [Unknown]
  - Umbilical hernia [Unknown]
  - Weight decreased [Unknown]
  - Pain in extremity [Unknown]
  - Rash generalised [Unknown]
  - Chills [Unknown]
  - Injection site erythema [Unknown]
  - Device occlusion [Unknown]
  - Seasonal allergy [Unknown]
  - Inguinal hernia [Unknown]
  - Flushing [Unknown]
  - Pruritus [Unknown]
  - Abdominal distension [Unknown]
  - Cough [Unknown]
  - Pollakiuria [Unknown]
  - Injection site pain [Unknown]
  - Paraesthesia [Unknown]
  - Diarrhoea [Unknown]
  - Nausea [Unknown]

NARRATIVE: CASE EVENT DATE: 201503
